FAERS Safety Report 8777378 (Version 3)
Quarter: 2012Q4

REPORT INFORMATION
  Report Type: 
  Country: US (occurrence: US)
  Receive Date: 20120911
  Receipt Date: 20121022
  Transmission Date: 20130627
  Serious: Yes (Death, Hospitalization, Other)
  Sender: FDA-Public Use
  Company Number: US-PFIZER INC-2012220038

PATIENT
  Age: 76 Year
  Sex: Female

DRUGS (16)
  1. REVATIO [Suspect]
     Indication: PULMONARY HYPERTENSION
     Dosage: 20 mg, 3x/day
     Dates: start: 20100624
  2. ASPIRIN [Concomitant]
     Dosage: 325 mg, 1x/day
  3. LIPITOR [Concomitant]
     Dosage: 10 mg, UNK
  4. AZITHROMYCIN [Concomitant]
     Dosage: 500 mg, 1x/day
     Route: 042
  5. ROCEPHIN [Concomitant]
     Dosage: 1 g, 1x/day
     Route: 042
  6. PLAVIX [Concomitant]
     Dosage: 75 mg, 1x/day
  7. LOVENOX [Concomitant]
     Indication: ATRIAL FIBRILLATION
     Dosage: 75 mg, UNK
  8. LASIX [Concomitant]
     Dosage: 40 mg, 1x/day
     Route: 048
  9. SYNTHROID [Concomitant]
     Dosage: 112 ug, 1x/day
  10. PROTONIX [Concomitant]
     Dosage: 40 mg, 1x/day
  11. ZANTAC [Concomitant]
     Dosage: 150 mg, 1x/day
  12. DIOVAN [Concomitant]
     Dosage: 160 mg, at noon
  13. VITAMIN D [Concomitant]
     Dosage: 400 IU, UNK
  14. ALBUTEROL [Concomitant]
     Dosage: UNK
  15. XOPENEX [Concomitant]
     Dosage: UNK
  16. NORVASC [Concomitant]
     Dosage: UNK

REACTIONS (9)
  - Death [Fatal]
  - Renal failure [Unknown]
  - Respiratory failure [Unknown]
  - Atrial fibrillation [Unknown]
  - Infective exacerbation of chronic obstructive airways disease [Unknown]
  - Pneumonia [Unknown]
  - Sleep apnoea syndrome [Unknown]
  - Claustrophobia [Unknown]
  - Sleep disorder due to general medical condition, insomnia type [Unknown]
